FAERS Safety Report 9172972 (Version 2)
Quarter: 2013Q1

REPORT INFORMATION
  Report Type: Spontaneous
  Country: US (occurrence: None)
  Receive Date: 20130313
  Receipt Date: 20130328
  Transmission Date: 20140127
  Serious: Yes (Hospitalization)
  Sender: FDA-Public Use
  Company Number: JPI-P-030324

PATIENT
  Age: 34 Year
  Sex: Female

DRUGS (1)
  1. XYREM [Suspect]
     Indication: NARCOLEPSY
     Dosage: 3 GM (1.5 GM, 2 IN 1 D), ORAL
     Route: 048
     Dates: start: 20080922

REACTIONS (2)
  - Migraine [None]
  - Adverse event [None]
